FAERS Safety Report 19837282 (Version 2)
Quarter: 2021Q4

REPORT INFORMATION
  Report Type: Spontaneous
  Country: US (occurrence: US)
  Receive Date: 20210916
  Receipt Date: 20211209
  Transmission Date: 20220303
  Serious: Yes (Other)
  Sender: FDA-Public Use
  Company Number: US-SUN PHARMACEUTICAL INDUSTRIES LTD-2021R1-311428

PATIENT
  Age: 35 Year
  Sex: Female

DRUGS (1)
  1. TRIAMCINOLONE [Suspect]
     Active Substance: TRIAMCINOLONE
     Indication: Retinal neovascularisation
     Dosage: 4 MILLIGRAM, EVERY 3-4 MONTHS

REACTIONS (2)
  - Cataract [Unknown]
  - Drug ineffective [Unknown]
